FAERS Safety Report 16583070 (Version 4)
Quarter: 2019Q4

REPORT INFORMATION
  Report Type: Spontaneous
  Country: US (occurrence: US)
  Receive Date: 20190717
  Receipt Date: 20191011
  Transmission Date: 20200122
  Serious: No
  Sender: FDA-Public Use
  Company Number: US-PFIZER INC-2019298906

PATIENT
  Age: 75 Year
  Sex: Male

DRUGS (2)
  1. XELJANZ XR [Suspect]
     Active Substance: TOFACITINIB CITRATE
     Indication: MYALGIA
     Dosage: 11 MG, DAILY
     Route: 048
     Dates: start: 201905
  2. XELJANZ XR [Suspect]
     Active Substance: TOFACITINIB CITRATE
     Indication: PSORIATIC ARTHROPATHY

REACTIONS (4)
  - Skin abrasion [Not Recovered/Not Resolved]
  - Arthralgia [Unknown]
  - Contusion [Unknown]
  - Pain [Unknown]

NARRATIVE: CASE EVENT DATE: 201906
